FAERS Safety Report 15459071 (Version 6)
Quarter: 2020Q1

REPORT INFORMATION
  Report Type: Report from Study
  Country: CO (occurrence: CO)
  Receive Date: 20181003
  Receipt Date: 20200228
  Transmission Date: 20200409
  Serious: Yes (Hospitalization, Other)
  Sender: FDA-Public Use
  Company Number: PHHY2018CO114355

PATIENT
  Age: 66 Year
  Sex: Female
  Weight: 60 kg

DRUGS (10)
  1. TASIGNA [Suspect]
     Active Substance: NILOTINIB
     Indication: CHRONIC MYELOID LEUKAEMIA
     Dosage: 800 MG, QD
     Route: 048
  2. SPIRONOLACTONE. [Concomitant]
     Active Substance: SPIRONOLACTONE
     Indication: PRODUCT USED FOR UNKNOWN INDICATION
     Route: 065
  3. LEVOTHYROXINE. [Concomitant]
     Active Substance: LEVOTHYROXINE
     Indication: PRODUCT USED FOR UNKNOWN INDICATION
     Route: 065
  4. CARDIOASPIRIN [Concomitant]
     Active Substance: ASPIRIN
     Indication: PRODUCT USED FOR UNKNOWN INDICATION
     Route: 065
  5. TASIGNA [Suspect]
     Active Substance: NILOTINIB
     Dosage: 400 MG, Q12H
     Route: 048
     Dates: start: 20130726
  6. ATORVASTATIN [Suspect]
     Active Substance: ATORVASTATIN
     Indication: BLOOD TRIGLYCERIDES
     Dosage: 40 MG, QD
     Route: 065
  7. LOSARTAN. [Concomitant]
     Active Substance: LOSARTAN
     Indication: PRODUCT USED FOR UNKNOWN INDICATION
     Route: 065
  8. LEFLUNOMIDE. [Concomitant]
     Active Substance: LEFLUNOMIDE
     Indication: ARTHRITIS
     Dosage: 20 MG, QD
     Route: 065
  9. DEFLACORT [Concomitant]
     Indication: ARTHRITIS
     Dosage: 6 MG, QD
     Route: 065
  10. PREGABALIN. [Suspect]
     Active Substance: PREGABALIN
     Indication: PRODUCT USED FOR UNKNOWN INDICATION
     Route: 065

REACTIONS (18)
  - Feeling cold [Unknown]
  - Peripheral swelling [Unknown]
  - Venous occlusion [Unknown]
  - Fall [Unknown]
  - Hypothyroidism [Recovering/Resolving]
  - Nausea [Unknown]
  - Hypertension [Unknown]
  - Pain in extremity [Recovering/Resolving]
  - Product prescribing error [Unknown]
  - Blood pressure increased [Unknown]
  - Peripheral artery stenosis [Unknown]
  - Skin ulcer [Unknown]
  - Arthritis [Unknown]
  - Hand fracture [Unknown]
  - Hypoaesthesia [Unknown]
  - Renal failure [Recovering/Resolving]
  - Inappropriate schedule of product administration [Unknown]
  - Peripheral vascular disorder [Unknown]

NARRATIVE: CASE EVENT DATE: 201808
